FAERS Safety Report 7814960-X (Version None)
Quarter: 2011Q4

REPORT INFORMATION
  Report Type: 
  Country: None (occurrence: None)
  Receive Date: 20111014
  Receipt Date: 20111007
  Transmission Date: 20120403
  Serious: Yes (Death)
  Sender: FDA-Public Use
  Company Number: GB-UCBSA-042818

PATIENT
  Age: 71 Year
  Sex: Female

DRUGS (3)
  1. HYDROXYCHLOROQUINE SULFATE [Concomitant]
  2. PREDNISOLONE [Concomitant]
  3. CERTOLIZUMAB [Suspect]
     Indication: RHEUMATOID ARTHRITIS
     Route: 058
     Dates: start: 20110616

REACTIONS (1)
  - DEATH [None]
